FAERS Safety Report 9965586 (Version 1)
Quarter: 2014Q1

REPORT INFORMATION
  Report Type: Report from Study
  Country: US (occurrence: US)
  Receive Date: 20140305
  Receipt Date: 20140305
  Transmission Date: 20141002
  Serious: No
  Sender: FDA-Public Use
  Company Number: US-ABBVIE-13P-163-1127018-00

PATIENT
  Age: 32 Year
  Sex: Female

DRUGS (5)
  1. HUMIRA [Suspect]
     Indication: PSORIASIS
     Dates: start: 201107, end: 201110
  2. HUMIRA [Suspect]
     Route: 058
     Dates: start: 20130721, end: 20130721
  3. TACLONEX [Concomitant]
     Indication: PSORIASIS
     Route: 061
  4. OLOX [Concomitant]
     Indication: PSORIASIS
  5. STEROID ANTIBACTERIALS [Concomitant]
     Indication: PSORIASIS

REACTIONS (4)
  - Psoriasis [Not Recovered/Not Resolved]
  - Injection site pain [Not Recovered/Not Resolved]
  - Injection site bruising [Not Recovered/Not Resolved]
  - Injection site haemorrhage [Not Recovered/Not Resolved]
